FAERS Safety Report 5283045-1 (Version None)
Quarter: 2007Q1

REPORT INFORMATION
  Report Type: 
  Country: None (occurrence: None)
  Receive Date: 20070328
  Receipt Date: 20070328
  Transmission Date: 20070707
  Serious: Yes (Other)
  Sender: FDA-Public Use
  Company Number: None

PATIENT
  Sex: Female

DRUGS (12)
  1. PEGVISOMANT 10 MG PFIZER [Suspect]
     Indication: ACROMEGALY
     Dosage: 10 MG DAILY SQ
     Route: 058
     Dates: start: 20070313, end: 20070325
  2. NEURONTIN [Concomitant]
  3. CABERGOLINE [Concomitant]
  4. MULTI-VITAMIN [Concomitant]
  5. ALEVE [Concomitant]
  6. EXCEDRIN (MIGRAINE) [Concomitant]
  7. PROTONIX [Concomitant]
  8. TYLENOL [Concomitant]
  9. ADVAIR DISKUS 100/50 [Concomitant]
  10. SINGULAIR [Concomitant]
  11. RHINOCORT AQUA [Concomitant]
  12. ORAL CONTRACEPTIVE PILL [Concomitant]

REACTIONS (3)
  - INJECTION SITE ERYTHEMA [None]
  - INJECTION SITE NODULE [None]
  - INJECTION SITE PRURITUS [None]
